FAERS Safety Report 18479099 (Version 1)
Quarter: 2020Q4

REPORT INFORMATION
  Report Type: Spontaneous
  Country: JP (occurrence: JP)
  Receive Date: 20201109
  Receipt Date: 20201109
  Transmission Date: 20210114
  Serious: Yes (Other)
  Sender: FDA-Public Use
  Company Number: JP-TEVA-2020-JP-006550J

PATIENT
  Age: 60 Year
  Sex: Male

DRUGS (1)
  1. LANSOPRAZOLE OD TABLET 15MG ^TAKEDA TEVA^ [Suspect]
     Active Substance: LANSOPRAZOLE
     Indication: GASTROOESOPHAGEAL REFLUX DISEASE
     Route: 048

REACTIONS (1)
  - Gastric cancer [Unknown]
